FAERS Safety Report 18092790 (Version 1)
Quarter: 2020Q3

REPORT INFORMATION
  Report Type: Spontaneous
  Country: US (occurrence: US)
  Receive Date: 20200730
  Receipt Date: 20200730
  Transmission Date: 20201103
  Serious: Yes (Death)
  Sender: FDA-Public Use
  Company Number: None

PATIENT
  Age: 55 Year
  Sex: Male
  Weight: 77.7 kg

DRUGS (19)
  1. POLYETHYLENE GLYCOLE [Concomitant]
  2. LACRI?LUBE [Concomitant]
  3. METHOCARBAMOL. [Concomitant]
     Active Substance: METHOCARBAMOL
  4. IBUPROFEN. [Concomitant]
     Active Substance: IBUPROFEN
  5. LEVOTHYROXINE. [Concomitant]
     Active Substance: LEVOTHYROXINE
  6. NEOMYCIN/POLYMYXIN/HYDROCORTISONE [Concomitant]
  7. FAMOTIDINE. [Concomitant]
     Active Substance: FAMOTIDINE
  8. PROCHLORPERAZINE. [Concomitant]
     Active Substance: PROCHLORPERAZINE
  9. OCULAR LUBRICANT [Concomitant]
  10. PAROXETINE. [Concomitant]
     Active Substance: PAROXETINE
  11. XANAX [Concomitant]
     Active Substance: ALPRAZOLAM
  12. NIVOLUMAB [Suspect]
     Active Substance: NIVOLUMAB
     Indication: SQUAMOUS CELL CARCINOMA OF THE TONGUE
     Dosage: ?          OTHER FREQUENCY:Q 4 WEEKS;?
     Route: 042
     Dates: start: 20200317, end: 20200710
  13. SODIUM CHLORIDE INH [Concomitant]
  14. LIDOCAINE?PRILOCAINE [Concomitant]
     Active Substance: LIDOCAINE\PRILOCAINE
  15. ONDANSETRON [Concomitant]
     Active Substance: ONDANSETRON
  16. ISOSOURCE HN [Concomitant]
     Active Substance: AMINO ACIDS\DEXTROSE\ELECTROLYTES NOS\SOYBEAN OIL\VITAMINS
  17. MUPIROCIN. [Concomitant]
     Active Substance: MUPIROCIN
  18. PREDNISONE. [Concomitant]
     Active Substance: PREDNISONE
  19. METOPROLOL TARTRATE. [Concomitant]
     Active Substance: METOPROLOL TARTRATE

REACTIONS (9)
  - Neoplasm progression [None]
  - Vascular compression [None]
  - Epistaxis [None]
  - Tumour invasion [None]
  - Resorption bone increased [None]
  - Mouth haemorrhage [None]
  - Tumour haemorrhage [None]
  - Transfusion [None]
  - Cerebrovascular disorder [None]

NARRATIVE: CASE EVENT DATE: 20200710
